FAERS Safety Report 7210600-1 (Version None)
Quarter: 2010Q4

REPORT INFORMATION
  Report Type: 
  Country: None (occurrence: None)
  Receive Date: 20101227
  Receipt Date: 20101213
  Transmission Date: 20110411
  Serious: Yes (Other)
  Sender: FDA-Public Use
  Company Number: 1000017824

PATIENT
  Age: 58 Year
  Sex: Male

DRUGS (5)
  1. DILTIAZEM HYDROCHLORIDE [Suspect]
     Dosage: 240 MG (240 MG, 1 IN 1 D), ORAL
     Route: 048
  2. FLECAINIDE ACETATE [Suspect]
     Dosage: 200 MG (100 MG, 2 IN 1 D), ORAL
     Route: 048
  3. FLUOXETINE [Suspect]
  4. SULFAMETHOXAZOLE AND TRIMETHOPRIM [Suspect]
  5. AZITHROMYCIN [Suspect]

REACTIONS (3)
  - ATRIOVENTRICULAR BLOCK FIRST DEGREE [None]
  - ELECTROCARDIOGRAM QT PROLONGED [None]
  - NODAL ARRHYTHMIA [None]
